FAERS Safety Report 15583739 (Version 1)
Quarter: 2018Q4

REPORT INFORMATION
  Report Type: Spontaneous
  Country: US (occurrence: US)
  Receive Date: 20181105
  Receipt Date: 20181105
  Transmission Date: 20190205
  Serious: Yes (Disabling)
  Sender: FDA-Public Use
  Company Number: None

PATIENT
  Age: 55 Year
  Sex: Female
  Weight: 61.65 kg

DRUGS (6)
  1. REVIA [Suspect]
     Active Substance: NALTREXONE HYDROCHLORIDE
     Indication: DRUG DEPENDENCE
     Dosage: ?          QUANTITY:30 TABLET(S);?
     Route: 048
     Dates: start: 20181104, end: 20181104
  2. FENOFIBRATE. [Concomitant]
     Active Substance: FENOFIBRATE
  3. REVIA [Suspect]
     Active Substance: NALTREXONE HYDROCHLORIDE
     Indication: ALCOHOL USE
     Dosage: ?          QUANTITY:30 TABLET(S);?
     Route: 048
     Dates: start: 20181104, end: 20181104
  4. VRAYLAR [Concomitant]
     Active Substance: CARIPRAZINE
  5. CENTRUM WOMEN^S VITAMINS FOR OVER AGE 50 [Concomitant]
  6. NALTREXONE [Concomitant]
     Active Substance: NALTREXONE

REACTIONS (7)
  - Vomiting [None]
  - Nasopharyngitis [None]
  - Abdominal pain [None]
  - Decreased appetite [None]
  - Hyperhidrosis [None]
  - Nausea [None]
  - Cold sweat [None]

NARRATIVE: CASE EVENT DATE: 20181104
